FAERS Safety Report 4534606-6 (Version None)
Quarter: 2004Q4

REPORT INFORMATION
  Report Type: 
  Country: None (occurrence: None)
  Receive Date: 20041214
  Receipt Date: 20040727
  Transmission Date: 20050328
  Serious: No
  Sender: FDA-Public Use
  Company Number: USA040773233

PATIENT
  Age: 77 Year
  Sex: Male

DRUGS (5)
  1. CIALIS [Suspect]
     Dosage: 20 MG OTHER
     Route: 050
     Dates: start: 20040601
  2. TESTOSTERONE [Concomitant]
  3. TRICOR [Concomitant]
  4. LIPITOR [Concomitant]
  5. METAGLIP [Concomitant]

REACTIONS (2)
  - DRUG INEFFECTIVE [None]
  - THERAPEUTIC RESPONSE DECREASED [None]
